FAERS Safety Report 7900102-9 (Version None)
Quarter: 2011Q4

REPORT INFORMATION
  Report Type: 
  Country: None (occurrence: None)
  Receive Date: 20111108
  Receipt Date: 20111031
  Transmission Date: 20120403
  Serious: No
  Sender: FDA-Public Use
  Company Number: US-BIOGENIDEC-2011BI041466

PATIENT
  Age: 51 Year
  Sex: Female

DRUGS (2)
  1. AVONEX [Suspect]
     Indication: MULTIPLE SCLEROSIS
     Route: 030
     Dates: start: 19961201
  2. AVONEX [Suspect]
     Route: 030
     Dates: start: 19981215

REACTIONS (5)
  - GLUCOSE TOLERANCE IMPAIRED [None]
  - IRRITABILITY [None]
  - MOOD SWINGS [None]
  - TREMOR [None]
  - MEMORY IMPAIRMENT [None]
